FAERS Safety Report 15631884 (Version 1)
Quarter: 2018Q4

REPORT INFORMATION
  Report Type: Spontaneous
  Country: US (occurrence: US)
  Receive Date: 20181113
  Receipt Date: 20181113
  Transmission Date: 20190205
  Serious: Yes (Death)
  Sender: FDA-Public Use
  Company Number: None

PATIENT
  Sex: Male
  Weight: 77.4 kg

DRUGS (1)
  1. OCEAN SALINE NASAL SPRAY [Suspect]
     Active Substance: SODIUM CHLORIDE
     Indication: NASAL CONGESTION
     Route: 055
     Dates: start: 20161209, end: 20180425

REACTIONS (1)
  - General symptom [None]
